FAERS Safety Report 4773666-4 (Version None)
Quarter: 2005Q3

REPORT INFORMATION
  Report Type: 
  Country: None (occurrence: None)
  Receive Date: 20050914
  Receipt Date: 20041103
  Transmission Date: 20060218
  Serious: Yes (Hospitalization)
  Sender: FDA-Public Use
  Company Number: 163-20785-04110090

PATIENT
  Age: 77 Year
  Sex: Male
  Weight: 78 kg

DRUGS (14)
  1. THALOMID [Suspect]
     Indication: PROSTATE CANCER
     Dosage: 100 MG, ORAL
     Route: 048
     Dates: start: 20041022, end: 20041101
  2. IMATINIB (IMATINIB) [Suspect]
     Indication: PROSTATE CANCER
     Dosage: 200 MG, ORAL
     Route: 048
     Dates: start: 20041022, end: 20041101
  3. ABSORBASE (ABSORBASE) (OINTMENT) [Concomitant]
  4. ALPRAZOLAM (ALPRAZOLAM) (TABLETS) [Concomitant]
  5. FLUTICASONE PROPIONATE [Concomitant]
  6. FUROSEMIDE [Concomitant]
  7. HYDROCODONE W/ACETAMINOPHEN (VICODIN) (TABLETS) [Concomitant]
  8. IRBESARTAN (IRBESARTAN) (TABLETS) [Concomitant]
  9. LOPERAMIDE (LOPERAMIDE) (CAPSULES) [Concomitant]
  10. METFORMIN (METFORMIN) (TABLETS) [Concomitant]
  11. MORPHINE SULFATE (MORPHINE SULFATE) (TABLETS) [Concomitant]
  12. POTASSIUM CHLORIDE (POTASSIUM CHLORIDE) (TABLETS) [Concomitant]
  13. SIMVASTATIN (SIMVASTATIN) (TABLETS) [Concomitant]
  14. CAPSAICIN CREAM [Concomitant]

REACTIONS (1)
  - DEHYDRATION [None]
